FAERS Safety Report 15793201 (Version 1)
Quarter: 2019Q1

REPORT INFORMATION
  Report Type: Report from Study
  Country: US (occurrence: US)
  Receive Date: 20190107
  Receipt Date: 20190107
  Transmission Date: 20190417
  Serious: No
  Sender: FDA-Public Use
  Company Number: PHEH2018US055723

PATIENT
  Age: 65 Year
  Sex: Female

DRUGS (2)
  1. COSENTYX [Suspect]
     Active Substance: SECUKINUMAB
     Indication: PSORIASIS
     Dosage: 300 MG, (AT WEEKS 0, 1, 2, 3, AND 4 THEN 300 MG ONCE EVERY 4 WEEKS)
     Route: 058
     Dates: start: 20181205
  2. COSENTYX [Suspect]
     Active Substance: SECUKINUMAB
     Dosage: 300 MG, (AT WEEKS 0, 1, 2, 3, AND 4 THEN 300 MG ONCE EVERY 4 WEEKS)
     Route: 058
     Dates: start: 20181217

REACTIONS (1)
  - Inappropriate schedule of product administration [Unknown]
